FAERS Safety Report 6842270-6 (Version None)
Quarter: 2010Q3

REPORT INFORMATION
  Report Type: 
  Country: None (occurrence: None)
  Receive Date: 20100714
  Receipt Date: 20070724
  Transmission Date: 20110219
  Serious: No
  Sender: FDA-Public Use
  Company Number: US-PFIZER INC-2007063357

PATIENT
  Sex: Female
  Weight: 66.818 kg

DRUGS (4)
  1. CHANTIX [Suspect]
     Indication: SMOKING CESSATION THERAPY
     Dates: end: 20070724
  2. DEPAKOTE [Concomitant]
  3. CITALOPRAM HYDROBROMIDE [Concomitant]
  4. ADVICOR [Concomitant]

REACTIONS (2)
  - DEPRESSION [None]
  - NAUSEA [None]
